FAERS Safety Report 8289796-9 (Version None)
Quarter: 2012Q2

REPORT INFORMATION
  Report Type: 
  Country: None (occurrence: None)
  Receive Date: 20120417
  Receipt Date: 20120409
  Transmission Date: 20120825
  Serious: Yes (Disabling)
  Sender: FDA-Public Use
  Company Number: US-PFIZER INC-2012088588

PATIENT
  Sex: Female

DRUGS (3)
  1. ARTHROTEC [Suspect]
     Dosage: 75 MG, UNK
  2. ARTHROTEC [Suspect]
     Indication: TRAUMATIC ARTHRITIS
     Dosage: 75MG/200MCG, 2X/DAY
     Route: 048
     Dates: start: 20020101, end: 20090101
  3. ARTHROTEC [Suspect]
     Dosage: 75MG/200MCG IN THE MORNING AND 50MG/200MCG AT NIGHT
     Route: 048
     Dates: start: 20090101

REACTIONS (3)
  - GAIT DISTURBANCE [None]
  - DRUG INEFFECTIVE [None]
  - PAIN [None]
